FAERS Safety Report 19154417 (Version 3)
Quarter: 2021Q3

REPORT INFORMATION
  Report Type: Report from Study
  Country: US (occurrence: US)
  Receive Date: 20210419
  Receipt Date: 20210721
  Transmission Date: 20211014
  Serious: Yes (Death, Hospitalization, Other)
  Sender: FDA-Public Use
  Company Number: US-OTSUKA-2021_011204AA

PATIENT
  Age: 80 Year
  Sex: Female

DRUGS (1)
  1. CEDAZURIDINE AND DECITABINE [Suspect]
     Active Substance: CEDAZURIDINE\DECITABINE
     Indication: BREAST NEOPLASM
     Dosage: 35?100 MG (35 MG DECITABINE AND 100 MG CEDAZURIDINE) QD ON DAYS 1,3,5 OF EACH 28?DAY CYCLE
     Route: 048
     Dates: start: 20210321

REACTIONS (13)
  - Product use issue [Unknown]
  - Taste disorder [Unknown]
  - Feeding disorder [Unknown]
  - Nausea [Unknown]
  - Parosmia [Unknown]
  - Rash [Recovered/Resolved]
  - Wrong technique in product usage process [Unknown]
  - Asthenia [Unknown]
  - Product packaging difficult to open [Unknown]
  - Platelet count decreased [Unknown]
  - Vomiting [Unknown]
  - Product use in unapproved indication [Unknown]
  - Death [Fatal]

NARRATIVE: CASE EVENT DATE: 20210330
